FAERS Safety Report 11080787 (Version 3)
Quarter: 2016Q1

REPORT INFORMATION
  Report Type: Spontaneous
  Country: JP (occurrence: JP)
  Receive Date: 20150501
  Receipt Date: 20160211
  Transmission Date: 20160525
  Serious: Yes (Death)
  Sender: FDA-Public Use
  Company Number: JP-TEVA-558397ISR

PATIENT
  Age: 62 Year
  Sex: Female
  Weight: 45 kg

DRUGS (7)
  1. XYLOCAINE [Concomitant]
     Active Substance: LIDOCAINE HYDROCHLORIDE
     Indication: CANCER PAIN
     Dosage: 100 MILLIGRAM DAILY;
     Route: 042
  2. E-FEN BUCCAL [Suspect]
     Active Substance: FENTANYL CITRATE
     Indication: BREAKTHROUGH PAIN
     Dosage: 100 MICROGRAM DAILY; 0 MICROGRAM - 200 MICROGRAM
     Route: 002
     Dates: start: 20140723, end: 20140729
  3. TRAMAL [Concomitant]
     Active Substance: TRAMADOL
     Indication: CANCER PAIN
     Dosage: 100 MILLIGRAM DAILY;
     Route: 042
  4. FENTANYL. [Concomitant]
     Active Substance: FENTANYL
     Dosage: .25 MILLIGRAM DAILY;
     Route: 042
     Dates: start: 20140724
  5. FENTANYL. [Concomitant]
     Active Substance: FENTANYL
     Indication: BREAKTHROUGH PAIN
     Dosage: .1 MILLIGRAM DAILY;
     Route: 042
  6. ACELIO [Concomitant]
     Active Substance: ACETAMINOPHEN
     Indication: CANCER PAIN
     Dosage: 500 MILLIGRAM DAILY;
     Route: 042
  7. DUROTEP [Concomitant]
     Active Substance: FENTANYL
     Indication: CANCER PAIN
     Dosage: 16.8 MILLIGRAM DAILY;
     Route: 062
     Dates: start: 20140723

REACTIONS (1)
  - Cervix carcinoma [Fatal]

NARRATIVE: CASE EVENT DATE: 20140811
